FAERS Safety Report 5050686-6 (Version None)
Quarter: 2006Q3

REPORT INFORMATION
  Report Type: 
  Country: None (occurrence: None)
  Receive Date: 20060707
  Receipt Date: 20060630
  Transmission Date: 20061208
  Serious: Yes (Hospitalization)
  Sender: FDA-Public Use
  Company Number: HQWYE804112APR06

PATIENT
  Age: 19 Year
  Sex: Female

DRUGS (17)
  1. RAPAMUNE [Suspect]
     Indication: PROPHYLAXIS AGAINST TRANSPLANT REJECTION
     Dosage: SEE ORAL
     Route: 048
     Dates: start: 20041108, end: 20050211
  2. RAPAMUNE [Suspect]
     Indication: PROPHYLAXIS AGAINST TRANSPLANT REJECTION
     Dosage: SEE ORAL
     Route: 048
     Dates: start: 20050211, end: 20050216
  3. RAPAMUNE [Suspect]
     Indication: PROPHYLAXIS AGAINST TRANSPLANT REJECTION
     Dosage: SEE ORAL
     Route: 048
     Dates: start: 20050216, end: 20050902
  4. RAPAMUNE [Suspect]
     Indication: PROPHYLAXIS AGAINST TRANSPLANT REJECTION
     Dosage: SEE ORAL
     Route: 048
     Dates: start: 20050902, end: 20051104
  5. RAPAMUNE [Suspect]
     Indication: PROPHYLAXIS AGAINST TRANSPLANT REJECTION
     Dosage: SEE ORAL
     Route: 048
     Dates: start: 20051104, end: 20060215
  6. RAPAMUNE [Suspect]
     Indication: PROPHYLAXIS AGAINST TRANSPLANT REJECTION
     Dosage: SEE ORAL
     Route: 048
     Dates: start: 20060215, end: 20060418
  7. PREDNISONE TAB [Concomitant]
  8. TACROLIMUS (TACROLIMUS) [Concomitant]
  9. CALCITRIOL [Concomitant]
  10. RANITIDINE [Concomitant]
  11. ENALAPRIL MALEATE [Concomitant]
  12. FOLIC ACID [Concomitant]
  13. AMLODIPINE [Concomitant]
  14. ARANESP [Concomitant]
  15. LIPITOR [Concomitant]
  16. IRON (IRON) [Concomitant]
  17. LABETALOL HCL [Concomitant]

REACTIONS (4)
  - DEHYDRATION [None]
  - GRAFT DYSFUNCTION [None]
  - KIDNEY TRANSPLANT REJECTION [None]
  - RENAL TUBULAR DISORDER [None]
